FAERS Safety Report 8453570-0 (Version None)
Quarter: 2012Q2

REPORT INFORMATION
  Report Type: 
  Country: None (occurrence: None)
  Receive Date: 20120620
  Receipt Date: 20120615
  Transmission Date: 20120825
  Serious: Yes (Death, Hospitalization)
  Sender: FDA-Public Use
  Company Number: US-CELGENEUS-163-21880-12041043

PATIENT
  Sex: Male

DRUGS (16)
  1. MILANTA [Concomitant]
     Route: 065
  2. TAMSULOSIN HCL [Concomitant]
     Route: 065
  3. FINASTERIDE [Concomitant]
     Route: 065
  4. DIAZEPAM [Concomitant]
     Route: 065
  5. ASPIRIN [Concomitant]
     Route: 065
  6. LORAZEPAM [Concomitant]
     Route: 065
  7. ROXANOL [Concomitant]
     Route: 065
  8. ANTI ITCH CREAM [Concomitant]
     Route: 061
  9. MIRAPEX [Concomitant]
     Route: 065
  10. HYDROMORPHONE HCL [Concomitant]
     Route: 065
  11. REVLIMID [Suspect]
     Indication: MULTIPLE MYELOMA
     Dosage: 15 MILLIGRAM
     Route: 048
     Dates: start: 20110804, end: 20120310
  12. ENALAPRIL MALEATE [Concomitant]
     Route: 065
  13. SENNA-MINT WAF [Concomitant]
     Route: 065
  14. OMEPRAZOLE [Concomitant]
     Route: 065
  15. ATROPINE SULFATE [Concomitant]
     Route: 065
  16. FENTANYL [Concomitant]
     Route: 065

REACTIONS (3)
  - RENAL FAILURE [None]
  - NEOPLASM PROGRESSION [None]
  - MULTIPLE MYELOMA [None]
